FAERS Safety Report 11316645 (Version 1)
Quarter: 2015Q3

REPORT INFORMATION
  Report Type: Spontaneous
  Country: BR (occurrence: BR)
  Receive Date: 20150728
  Receipt Date: 20150728
  Transmission Date: 20151125
  Serious: Yes (Other)
  Sender: FDA-Public Use
  Company Number: BR-009507513-1507BRA011255

PATIENT
  Sex: Female
  Weight: 56 kg

DRUGS (5)
  1. PANTOPRAZOLE [Concomitant]
     Active Substance: PANTOPRAZOLE SODIUM
     Indication: GASTRIC DISORDER
     Dosage: 20 MG, QD
     Route: 048
     Dates: start: 2002
  2. FOSAMAX PLUS D [Suspect]
     Active Substance: ALENDRONATE SODIUM\CHOLECALCIFEROL
     Dosage: UNK, QW
     Route: 048
     Dates: start: 201505
  3. CAL D (CHOLECALCIFEROL) [Concomitant]
     Indication: MINERAL SUPPLEMENTATION
     Dosage: UNK
     Route: 048
  4. FOSAMAX PLUS D [Suspect]
     Active Substance: ALENDRONATE SODIUM\CHOLECALCIFEROL
     Indication: OSTEOPOROSIS
     Dosage: UNK, QW
     Route: 048
     Dates: start: 2005, end: 2012
  5. FOSAMAX PLUS D [Suspect]
     Active Substance: ALENDRONATE SODIUM\CHOLECALCIFEROL
     Dosage: UNK, QW
     Route: 048
     Dates: start: 2012, end: 201503

REACTIONS (11)
  - Uterine cancer [Unknown]
  - Thyroid disorder [Not Recovered/Not Resolved]
  - Fistula [Recovered/Resolved]
  - Gastrointestinal pain [Recovered/Resolved]
  - Nervousness [Unknown]
  - Gastric ulcer [Unknown]
  - Gastric ulcer haemorrhage [Unknown]
  - Flatulence [Not Recovered/Not Resolved]
  - Dental implantation [Recovered/Resolved]
  - Haemorrhoids [Unknown]
  - Gastrointestinal pain [Not Recovered/Not Resolved]

NARRATIVE: CASE EVENT DATE: 2005
